FAERS Safety Report 25579021 (Version 1)
Quarter: 2025Q3

REPORT INFORMATION
  Report Type: Spontaneous
  Country: CN (occurrence: CN)
  Receive Date: 20250718
  Receipt Date: 20250718
  Transmission Date: 20251021
  Serious: Yes (Other)
  Sender: MYLAN
  Company Number: CN-MYLANLABS-2025M1059325

PATIENT
  Age: 81 Year
  Sex: Male
  Weight: 61 kg

DRUGS (12)
  1. LIPITOR [Suspect]
     Active Substance: ATORVASTATIN CALCIUM
     Indication: Lipids abnormal
     Dosage: 20 MILLIGRAM, QD
     Dates: start: 20250612, end: 20250620
  2. LIPITOR [Suspect]
     Active Substance: ATORVASTATIN CALCIUM
     Indication: Arteriosclerosis
     Dosage: 20 MILLIGRAM, QD
     Route: 048
     Dates: start: 20250612, end: 20250620
  3. LIPITOR [Suspect]
     Active Substance: ATORVASTATIN CALCIUM
     Indication: Cerebral infarction
     Dosage: 20 MILLIGRAM, QD
     Route: 048
     Dates: start: 20250612, end: 20250620
  4. LIPITOR [Suspect]
     Active Substance: ATORVASTATIN CALCIUM
     Dosage: 20 MILLIGRAM, QD
     Dates: start: 20250612, end: 20250620
  5. EDARAVONE [Concomitant]
     Active Substance: EDARAVONE
     Indication: Cerebral infarction
     Dosage: 15 MILLILITER, BID
     Dates: start: 20250612, end: 20250619
  6. EDARAVONE [Concomitant]
     Active Substance: EDARAVONE
     Dosage: 15 MILLILITER, BID
     Route: 042
     Dates: start: 20250612, end: 20250619
  7. EDARAVONE [Concomitant]
     Active Substance: EDARAVONE
     Dosage: 15 MILLILITER, BID
     Route: 042
     Dates: start: 20250612, end: 20250619
  8. EDARAVONE [Concomitant]
     Active Substance: EDARAVONE
     Dosage: 15 MILLILITER, BID
     Dates: start: 20250612, end: 20250619
  9. TIROFIBAN HYDROCHLORIDE [Concomitant]
     Active Substance: TIROFIBAN HYDROCHLORIDE
     Indication: Cerebral infarction
     Dosage: 8.625 MILLIGRAM, QD (7.3ML/H VIA PUMP INJECTION)
     Dates: start: 20250612, end: 20250614
  10. TIROFIBAN HYDROCHLORIDE [Concomitant]
     Active Substance: TIROFIBAN HYDROCHLORIDE
     Indication: Antiplatelet therapy
     Dosage: 8.625 MILLIGRAM, QD (7.3ML/H VIA PUMP INJECTION)
     Route: 065
     Dates: start: 20250612, end: 20250614
  11. TIROFIBAN HYDROCHLORIDE [Concomitant]
     Active Substance: TIROFIBAN HYDROCHLORIDE
     Dosage: 8.625 MILLIGRAM, QD (7.3ML/H VIA PUMP INJECTION)
     Route: 065
     Dates: start: 20250612, end: 20250614
  12. TIROFIBAN HYDROCHLORIDE [Concomitant]
     Active Substance: TIROFIBAN HYDROCHLORIDE
     Dosage: 8.625 MILLIGRAM, QD (7.3ML/H VIA PUMP INJECTION)
     Dates: start: 20250612, end: 20250614

REACTIONS (1)
  - Myocardial necrosis marker increased [Recovering/Resolving]

NARRATIVE: CASE EVENT DATE: 20250620
